FAERS Safety Report 15030935 (Version 1)
Quarter: 2018Q2

REPORT INFORMATION
  Report Type: Report from Study
  Country: US (occurrence: US)
  Receive Date: 20180619
  Receipt Date: 20180619
  Transmission Date: 20180711
  Serious: Yes (Death, Hospitalization)
  Sender: FDA-Public Use
  Company Number: US-ACTELION-A-US2017-149056

PATIENT
  Age: 76 Year
  Sex: Male
  Weight: 73.16 kg

DRUGS (9)
  1. ELIQUIS [Concomitant]
     Active Substance: APIXABAN
  2. OPSUMIT [Suspect]
     Active Substance: MACITENTAN
     Dosage: 10 MG, QD
     Route: 048
  3. ADCIRCA [Concomitant]
     Active Substance: TADALAFIL
  4. DILTIAZEM. [Concomitant]
     Active Substance: DILTIAZEM
  5. UPTRAVI [Suspect]
     Active Substance: SELEXIPAG
     Indication: PULMONARY ARTERIAL HYPERTENSION
     Dosage: 1600 MCG, BID
     Route: 048
  6. OPSUMIT [Suspect]
     Active Substance: MACITENTAN
     Indication: PULMONARY ARTERIAL HYPERTENSION
     Dosage: 10 MG, QD
     Route: 048
     Dates: start: 20160906
  7. UPTRAVI [Suspect]
     Active Substance: SELEXIPAG
     Dosage: 3200 MCG, BID
     Route: 048
  8. UPTRAVI [Suspect]
     Active Substance: SELEXIPAG
     Dosage: 800 MCG, BID
     Route: 048
     Dates: start: 20170103
  9. SILDENAFIL CITRATE. [Concomitant]
     Active Substance: SILDENAFIL CITRATE

REACTIONS (22)
  - Death [Fatal]
  - Diarrhoea [Recovered/Resolved]
  - Hypoacusis [Unknown]
  - Unevaluable event [Unknown]
  - Nausea [Unknown]
  - Blue toe syndrome [Unknown]
  - Extra dose administered [Unknown]
  - Nasopharyngitis [Unknown]
  - Sinus disorder [Unknown]
  - Headache [Unknown]
  - Hyposmia [Unknown]
  - Sneezing [Unknown]
  - Dyspnoea [Unknown]
  - Pain in jaw [Unknown]
  - Hypogeusia [Unknown]
  - Fatigue [Unknown]
  - Peripheral coldness [Unknown]
  - Blood pressure decreased [Unknown]
  - Cough [Unknown]
  - Hypersensitivity [Unknown]
  - Weight decreased [Unknown]
  - Fall [Unknown]

NARRATIVE: CASE EVENT DATE: 201701
